FAERS Safety Report 7830949-9 (Version None)
Quarter: 2011Q4

REPORT INFORMATION
  Report Type: 
  Country: None (occurrence: None)
  Receive Date: 20111021
  Receipt Date: 20111020
  Transmission Date: 20120403
  Serious: Yes (Other)
  Sender: FDA-Public Use
  Company Number: US-PFIZER INC-2011220458

PATIENT
  Sex: Female
  Weight: 49.401 kg

DRUGS (3)
  1. IBUPROFEN (ADVIL) [Suspect]
     Indication: HEADACHE
     Dosage: 200 MG, 2X/DAY
     Route: 048
  2. PREMPRO [Concomitant]
     Indication: HORMONE LEVEL ABNORMAL
     Dosage: UNK
  3. LEXAPRO [Concomitant]
     Indication: ANXIETY
     Dosage: UNK

REACTIONS (1)
  - HYPERTENSION [None]
